FAERS Safety Report 6984569-9 (Version None)
Quarter: 2010Q3

REPORT INFORMATION
  Report Type: 
  Country: None (occurrence: None)
  Receive Date: 20100915
  Receipt Date: 20100902
  Transmission Date: 20110219
  Serious: Yes (Other)
  Sender: FDA-Public Use
  Company Number: US-PFIZER INC-2010107367

PATIENT
  Sex: Female
  Weight: 56 kg

DRUGS (4)
  1. CHANTIX [Suspect]
     Indication: SMOKING CESSATION THERAPY
     Dosage: 0.5 MG, 1X/DAY
     Route: 048
     Dates: start: 20100817, end: 20100901
  2. CHANTIX [Suspect]
     Dosage: 0.5 MG, 2X/DAY
     Route: 048
  3. CHANTIX [Suspect]
     Dosage: UNK
     Dates: start: 20100817, end: 20100901
  4. SYNTHROID [Concomitant]
     Indication: THYROID DISORDER
     Dosage: UNK

REACTIONS (5)
  - DIARRHOEA [None]
  - FATIGUE [None]
  - LETHARGY [None]
  - MOBILITY DECREASED [None]
  - NAUSEA [None]
